FAERS Safety Report 7618033-0 (Version None)
Quarter: 2011Q3

REPORT INFORMATION
  Report Type: 
  Country: None (occurrence: None)
  Receive Date: 20110718
  Receipt Date: 20110711
  Transmission Date: 20111222
  Serious: Yes (Death)
  Sender: FDA-Public Use
  Company Number: GR-GLAXOSMITHKLINE-B0733576A

PATIENT
  Sex: Male

DRUGS (6)
  1. ARZERRA [Suspect]
     Indication: CHRONIC LYMPHOCYTIC LEUKAEMIA
     Route: 065
     Dates: start: 20110512, end: 20110526
  2. LEUKERAN [Concomitant]
  3. RITUXIMAB [Concomitant]
  4. IMMUNE GLOBULIN INTRAVENOUS (HUMAN) [Concomitant]
  5. MABCAMPATH [Concomitant]
  6. FLUDARA [Concomitant]

REACTIONS (1)
  - RENAL IMPAIRMENT [None]
